FAERS Safety Report 13157998 (Version 4)
Quarter: 2017Q2

REPORT INFORMATION
  Report Type: Spontaneous
  Country: US (occurrence: US)
  Receive Date: 20170127
  Receipt Date: 20170405
  Transmission Date: 20170830
  Serious: No
  Sender: FDA-Public Use
  Company Number: US-PFIZER INC-2016568923

PATIENT
  Age: 78 Year
  Sex: Male

DRUGS (6)
  1. SUTENT [Suspect]
     Active Substance: SUNITINIB MALATE
     Dosage: UNK
  2. SUTENT [Suspect]
     Active Substance: SUNITINIB MALATE
     Dosage: UNK
  3. SUTENT [Suspect]
     Active Substance: SUNITINIB MALATE
     Dosage: UNK
  4. METFORMIN [Concomitant]
     Active Substance: METFORMIN HYDROCHLORIDE
     Dosage: UNK
  5. SUTENT [Suspect]
     Active Substance: SUNITINIB MALATE
     Indication: RENAL CELL CARCINOMA
     Dosage: 50 MG, CYCLIC (2 WEEKS ON/1 WEEK OFF)
     Dates: start: 20161208
  6. SUTENT [Suspect]
     Active Substance: SUNITINIB MALATE
     Dosage: UNK

REACTIONS (7)
  - Neoplasm progression [Unknown]
  - Dysgeusia [Unknown]
  - Weight decreased [Unknown]
  - Diarrhoea [Unknown]
  - Decreased appetite [Unknown]
  - Dyspepsia [Unknown]
  - Fatigue [Unknown]
